FAERS Safety Report 7873209-2 (Version None)
Quarter: 2011Q4

REPORT INFORMATION
  Report Type: 
  Country: None (occurrence: None)
  Receive Date: 20111030
  Receipt Date: 20110429
  Transmission Date: 20120403
  Serious: No
  Sender: FDA-Public Use
  Company Number: US-AMGEN-KDL412413

PATIENT
  Age: 56 Year
  Sex: Female

DRUGS (2)
  1. ENBREL [Suspect]
     Dosage: 50 MG, QWK
     Route: 058
     Dates: start: 20080303, end: 20110428
  2. ENBREL [Suspect]
     Indication: RHEUMATOID ARTHRITIS
     Dosage: 50 MG, QWK
     Route: 058
     Dates: start: 20080303, end: 20110428

REACTIONS (28)
  - HEAD TITUBATION [None]
  - PHOTOPSIA [None]
  - DIZZINESS [None]
  - CARDIAC MURMUR [None]
  - DYSGEUSIA [None]
  - PAIN IN EXTREMITY [None]
  - LARYNGITIS [None]
  - PALPITATIONS [None]
  - EAR HAEMORRHAGE [None]
  - RESPIRATORY TRACT CONGESTION [None]
  - HEADACHE [None]
  - ORTHOSIS USER [None]
  - TOOTH EXTRACTION [None]
  - COUGH [None]
  - HYPOAESTHESIA [None]
  - FLATULENCE [None]
  - MOBILITY DECREASED [None]
  - WALKING AID USER [None]
  - MALAISE [None]
  - MUSCULOSKELETAL PAIN [None]
  - VISUAL ACUITY REDUCED [None]
  - ARTHRALGIA [None]
  - HYPOAESTHESIA ORAL [None]
  - VITREOUS FLOATERS [None]
  - FATIGUE [None]
  - THROAT IRRITATION [None]
  - PAIN [None]
  - CHEST DISCOMFORT [None]
